FAERS Safety Report 10647842 (Version 3)
Quarter: 2015Q2

REPORT INFORMATION
  Report Type: Report from Study
  Country: JP (occurrence: JP)
  Receive Date: 20141212
  Receipt Date: 20150512
  Transmission Date: 20150821
  Serious: Yes (Other)
  Sender: FDA-Public Use
  Company Number: JP-009507513-1412JPN005583

PATIENT
  Age: 79 Year
  Sex: Female
  Weight: 49 kg

DRUGS (11)
  1. PEGINTRON [Suspect]
     Active Substance: PEGINTERFERON ALFA-2B
     Indication: CHRONIC HEPATITIS C
     Dosage: 70 MICROGRAM, QW
     Route: 058
     Dates: start: 20140408, end: 20140519
  2. PEGINTRON [Suspect]
     Active Substance: PEGINTERFERON ALFA-2B
     Dosage: 60 MICROGRAM, QW
     Route: 058
     Dates: start: 20140520, end: 20140602
  3. PEGINTRON [Suspect]
     Active Substance: PEGINTERFERON ALFA-2B
     Dosage: 50 MICROGRAM, QW
     Route: 058
     Dates: start: 20140609, end: 20140707
  4. DOGMATYL [Concomitant]
     Active Substance: SULPIRIDE
     Dosage: 100 MG, 1 IN 1 DAY
     Route: 048
  5. RIBAVIRIN. [Suspect]
     Active Substance: RIBAVIRIN
     Indication: CHRONIC HEPATITIS C
     Dosage: 600 MG, IN 1 DAY
     Route: 048
     Dates: start: 20140408, end: 20140711
  6. DAI-KENCHU-TO [Concomitant]
     Active Substance: MALTOSE
     Dosage: 7.5 G, 1 IN 1 DAY
     Route: 048
  7. MAGMITT [Concomitant]
     Active Substance: MAGNESIUM OXIDE
     Dosage: 500 MG, 1 IN 1 DAY
     Route: 048
  8. PARIET [Concomitant]
     Active Substance: RABEPRAZOLE SODIUM
     Dosage: 10 MG, 1 IN 1 DAY
     Route: 048
  9. TETRAMIDE [Concomitant]
     Active Substance: MIANSERIN
     Dosage: 5 MG, 1 IN 1 DAY
     Route: 048
  10. SIMEPREVIR [Suspect]
     Active Substance: SIMEPREVIR
     Indication: CHRONIC HEPATITIS C
     Dosage: 100 MG, IN 1 DAY
     Route: 048
     Dates: start: 20140408, end: 20140629
  11. CELECOX [Concomitant]
     Active Substance: CELECOXIB
     Dosage: 200 MG, 1 IN 1 DAY
     Route: 048

REACTIONS (5)
  - Haemolytic anaemia [Recovering/Resolving]
  - Neutrophil count decreased [Recovered/Resolved]
  - Ileus [Recovering/Resolving]
  - White blood cell count decreased [Not Recovered/Not Resolved]
  - Dehydration [Recovering/Resolving]

NARRATIVE: CASE EVENT DATE: 20140414
